FAERS Safety Report 24156573 (Version 1)
Quarter: 2024Q3

REPORT INFORMATION
  Report Type: Spontaneous
  Country: CN (occurrence: CN)
  Receive Date: 20240731
  Receipt Date: 20240731
  Transmission Date: 20241016
  Serious: Yes (Hospitalization, Other)
  Sender: BEIGENE
  Company Number: CN-BEIGENE-BGN-2024-011339

PATIENT

DRUGS (3)
  1. TISLELIZUMAB [Suspect]
     Active Substance: TISLELIZUMAB
     Indication: Hepatic cancer
     Dosage: 200 MILLIGRAM, Q3WK
     Route: 041
     Dates: start: 20240306, end: 20240529
  2. DONAFENIB MESYLATE [Suspect]
     Active Substance: DONAFENIB MESYLATE
     Indication: Hepatic cancer
     Dosage: 4 CAPSULES QD
     Route: 048
     Dates: start: 20240306, end: 202404
  3. DONAFENIB MESYLATE [Suspect]
     Active Substance: DONAFENIB MESYLATE
     Dosage: 3 CAPSULES QD
     Route: 048
     Dates: start: 202404, end: 20240522

REACTIONS (3)
  - Nephrotic syndrome [Recovering/Resolving]
  - Nephropathy toxic [Recovering/Resolving]
  - Drug eruption [Recovering/Resolving]

NARRATIVE: CASE EVENT DATE: 20240405
